FAERS Safety Report 7800913-4 (Version None)
Quarter: 2011Q4

REPORT INFORMATION
  Report Type: 
  Country: None (occurrence: None)
  Receive Date: 20111006
  Receipt Date: 20111005
  Transmission Date: 20120403
  Serious: No
  Sender: FDA-Public Use
  Company Number: US-BAYER-2011-095744

PATIENT
  Age: 29 Year

DRUGS (1)
  1. GADAVIST [Suspect]
     Dosage: 10 ML, ONCE
     Dates: start: 20111003

REACTIONS (1)
  - VOMITING [None]
